FAERS Safety Report 4986208-5 (Version None)
Quarter: 2006Q2

REPORT INFORMATION
  Report Type: 
  Country: None (occurrence: None)
  Receive Date: 20060428
  Receipt Date: 20050826
  Transmission Date: 20061013
  Serious: Yes (Hospitalization)
  Sender: FDA-Public Use
  Company Number: NO-MERCK-0508NOR00024

PATIENT
  Age: 54 Year
  Sex: Female

DRUGS (4)
  1. VIOXX [Suspect]
     Indication: BACK PAIN
     Route: 048
     Dates: start: 20021001, end: 20030101
  2. VIOXX [Suspect]
     Route: 048
     Dates: start: 20030523, end: 20030801
  3. VIOXX [Suspect]
     Indication: MYALGIA
     Route: 048
     Dates: start: 20021001, end: 20030101
  4. VIOXX [Suspect]
     Route: 048
     Dates: start: 20030523, end: 20030801

REACTIONS (2)
  - CEREBROVASCULAR ACCIDENT [None]
  - EPILEPSY [None]
